FAERS Safety Report 8229052-8 (Version None)
Quarter: 2012Q1

REPORT INFORMATION
  Report Type: 
  Country: None (occurrence: None)
  Receive Date: 20120322
  Receipt Date: 20120313
  Transmission Date: 20120608
  Serious: Yes (Death)
  Sender: FDA-Public Use
  Company Number: JP-MERCK-1203USA01700

PATIENT
  Sex: Male

DRUGS (1)
  1. JANUVIA [Suspect]
     Indication: TYPE 2 DIABETES MELLITUS
     Dosage: 25 MG, 50 MG 100 MG
     Route: 048
     Dates: start: 20110217

REACTIONS (1)
  - LUNG NEOPLASM MALIGNANT [None]
